FAERS Safety Report 14977438 (Version 1)
Quarter: 2018Q2

REPORT INFORMATION
  Report Type: Spontaneous
  Country: DE (occurrence: DE)
  Receive Date: 20180606
  Receipt Date: 20180606
  Transmission Date: 20180711
  Serious: Yes (Hospitalization)
  Sender: FDA-Public Use
  Company Number: DE-TEVA-2018-DE-902445

PATIENT
  Age: 75 Year
  Sex: Female

DRUGS (12)
  1. METRONIDAZOL [Concomitant]
     Active Substance: METRONIDAZOLE
     Dosage: 1-1-1-0
     Route: 065
  2. VALSARTAN. [Concomitant]
     Active Substance: VALSARTAN
     Dosage: 1-0-1-0
     Route: 065
  3. CETIRIZIN [Concomitant]
     Active Substance: CETIRIZINE HYDROCHLORIDE
     Dosage: 1-0-0-0
     Route: 065
  4. PROMETHAZINE [Suspect]
     Active Substance: PROMETHAZINE\PROMETHAZINE HYDROCHLORIDE
     Dosage: 0-0-0-25, TROPFEN
     Route: 065
  5. DIMETINDEN [Concomitant]
     Active Substance: DIMETHINDENE
     Dosage: 0-0-1-0
     Route: 065
  6. TORASEMID [Concomitant]
     Active Substance: TORSEMIDE
     Dosage: 2-0-0-0
     Route: 065
  7. FOLS?URE [Concomitant]
     Dosage: 1-0-1-0
     Route: 065
  8. AGOMELATIN [Concomitant]
     Active Substance: AGOMELATINE
     Dosage: 0-0-0-1
     Route: 065
  9. PRAMIPEXOLE. [Suspect]
     Active Substance: PRAMIPEXOLE
     Dosage: 0-0-1-0
     Route: 065
  10. PANTOPRAZOL [Concomitant]
     Active Substance: PANTOPRAZOLE SODIUM
     Dosage: 1-0-1-0
     Route: 065
  11. ESCHERICHIA COLI [Concomitant]
     Active Substance: ESCHERICHIA COLI
     Dosage: 1-0-0-0
     Route: 065
  12. METAMIZOL [Concomitant]
     Active Substance: METAMIZOLE SODIUM
     Dosage: 40-40-40-40, TROPFEN
     Route: 065

REACTIONS (3)
  - Seizure [Unknown]
  - Depressed level of consciousness [Unknown]
  - Vomiting [Unknown]
